FAERS Safety Report 10192046 (Version 1)
Quarter: 2014Q2

REPORT INFORMATION
  Report Type: Spontaneous
  Country: JP (occurrence: JP)
  Receive Date: 20140523
  Receipt Date: 20140523
  Transmission Date: 20141212
  Serious: Yes (Other)
  Sender: FDA-Public Use
  Company Number: JP-PFIZER INC-2014136774

PATIENT
  Age: 81 Year
  Sex: Male

DRUGS (5)
  1. LYRICA [Suspect]
     Indication: TRIGEMINAL NEURALGIA
     Dosage: 150 MG, DAILY
     Route: 048
  2. AMLODIPINE [Concomitant]
     Dosage: 5 MG, DAILY
     Route: 048
  3. TRAMCET [Concomitant]
     Dosage: 3 DF, DAILY
     Route: 048
  4. LUDIOMIL TABLET [Concomitant]
     Dosage: 20 MG, DAILY
     Route: 048
  5. LEXOTAN [Concomitant]
     Dosage: 4 MG, DAILY
     Route: 048

REACTIONS (5)
  - Quadriplegia [Unknown]
  - Ataxia [Unknown]
  - Memory impairment [Unknown]
  - Disorientation [Unknown]
  - Hypertension [Unknown]
